FAERS Safety Report 10256478 (Version 2)
Quarter: 2014Q2

REPORT INFORMATION
  Report Type: Report from Study
  Country: BE (occurrence: BE)
  Receive Date: 20140624
  Receipt Date: 20140624
  Transmission Date: 20141212
  Serious: Yes (Other)
  Sender: FDA-Public Use
  Company Number: BE-JNJFOC-20130603083

PATIENT
  Age: 76 Year
  Sex: Male
  Weight: 74 kg

DRUGS (8)
  1. XARELTO [Suspect]
     Indication: ATRIAL FIBRILLATION
     Route: 048
     Dates: start: 20121204
  2. XARELTO [Suspect]
     Indication: CEREBROVASCULAR ACCIDENT PROPHYLAXIS
     Route: 048
     Dates: start: 20121204
  3. SEROXAT [Concomitant]
     Route: 065
     Dates: start: 20060630
  4. CRESTOR [Concomitant]
     Route: 065
     Dates: start: 20060630
  5. ASAFLOW [Concomitant]
     Route: 065
     Dates: start: 2006
  6. ASAFLOW [Concomitant]
     Route: 065
     Dates: start: 20060630
  7. SOTALEX [Concomitant]
     Route: 065
     Dates: start: 20060630
  8. CLOZAN [Concomitant]
     Route: 065

REACTIONS (1)
  - Myelodysplastic syndrome [Not Recovered/Not Resolved]
